FAERS Safety Report 12587333 (Version 1)
Quarter: 2016Q3

REPORT INFORMATION
  Report Type: Spontaneous
  Country: US (occurrence: US)
  Receive Date: 20160725
  Receipt Date: 20160725
  Transmission Date: 20161109
  Serious: No
  Sender: FDA-Public Use
  Company Number: US-MEDA-2016070048

PATIENT
  Age: 89 Year
  Sex: Female
  Weight: 68 kg

DRUGS (4)
  1. THYROXINE [Concomitant]
     Active Substance: LEVOTHYROXINE
     Indication: HYPOTHYROIDISM
  2. DYAZIDE [Concomitant]
     Active Substance: HYDROCHLOROTHIAZIDE\TRIAMTERENE
  3. PROCTOFOAM HC [Suspect]
     Active Substance: HYDROCORTISONE ACETATE\PRAMOXINE HYDROCHLORIDE
     Indication: HAEMORRHOIDS
     Route: 054
     Dates: start: 2013, end: 201604
  4. LATANOPROST. [Concomitant]
     Active Substance: LATANOPROST
     Indication: GLAUCOMA
     Route: 047

REACTIONS (9)
  - Rash generalised [Recovering/Resolving]
  - Erythema [Recovering/Resolving]
  - Breast pain [Recovering/Resolving]
  - Rectal haemorrhage [Not Recovered/Not Resolved]
  - Groin pain [Recovering/Resolving]
  - Inappropriate schedule of drug administration [Unknown]
  - Drug dose omission [Unknown]
  - Pruritus [Not Recovered/Not Resolved]
  - Condition aggravated [Not Recovered/Not Resolved]

NARRATIVE: CASE EVENT DATE: 2015
